FAERS Safety Report 8372082-6 (Version None)
Quarter: 2012Q2

REPORT INFORMATION
  Report Type: 
  Country: None (occurrence: None)
  Receive Date: 20120520
  Receipt Date: 20120411
  Transmission Date: 20120825
  Serious: Yes (Hospitalization)
  Sender: FDA-Public Use
  Company Number: PHHY2012HR027658

PATIENT
  Age: 72 Year
  Sex: Female

DRUGS (4)
  1. AMARYL [Concomitant]
     Indication: DIABETES MELLITUS
  2. RAMIPRIL [Concomitant]
     Indication: HYPERTENSION
  3. LESCOL XL [Suspect]
     Indication: HYPERLIPIDAEMIA
     Route: 048
     Dates: start: 20100101
  4. JANUMET [Concomitant]
     Indication: DIABETES MELLITUS
     Dosage: 2 DF

REACTIONS (5)
  - NAUSEA [None]
  - VOMITING [None]
  - JAUNDICE [None]
  - HEPATIC LESION [None]
  - ABDOMINAL PAIN UPPER [None]
